FAERS Safety Report 16939317 (Version 1)
Quarter: 2019Q4

REPORT INFORMATION
  Report Type: Spontaneous
  Country: JP (occurrence: JP)
  Receive Date: 20191021
  Receipt Date: 20191021
  Transmission Date: 20200122
  Serious: Yes (Other)
  Sender: FDA-Public Use
  Company Number: JP-AMGEN-JPNSP2019172175

PATIENT
  Age: 82 Year
  Sex: Female

DRUGS (1)
  1. REGPARA [Suspect]
     Active Substance: CINACALCET HYDROCHLORIDE
     Indication: HYPERCALCAEMIA
     Dosage: UNK
     Route: 048

REACTIONS (2)
  - Intestinal ischaemia [Unknown]
  - Gastric pneumatosis [Recovered/Resolved]
